FAERS Safety Report 13438761 (Version 4)
Quarter: 2018Q2

REPORT INFORMATION
  Report Type: Spontaneous
  Country: JP (occurrence: JP)
  Receive Date: 20170412
  Receipt Date: 20180425
  Transmission Date: 20180711
  Serious: Yes (Other)
  Sender: FDA-Public Use
  Company Number: JP-PFIZER INC-2017145110

PATIENT
  Age: 77 Year
  Sex: Male

DRUGS (3)
  1. TORISEL [Suspect]
     Active Substance: TEMSIROLIMUS
     Dosage: UNK
  2. ONETRAM [Concomitant]
     Active Substance: TRAMADOL HYDROCHLORIDE
     Dosage: UNK
  3. TRAMAL [Concomitant]
     Active Substance: TRAMADOL
     Dosage: UNK, AS NEEDED

REACTIONS (7)
  - Blood creatinine increased [Unknown]
  - Renal function test abnormal [Unknown]
  - Neoplasm progression [Unknown]
  - Pain of skin [Unknown]
  - Tumour embolism [Unknown]
  - Venous thrombosis limb [Unknown]
  - Discomfort [Unknown]

NARRATIVE: CASE EVENT DATE: 2016
